FAERS Safety Report 5095206-5 (Version None)
Quarter: 2006Q3

REPORT INFORMATION
  Report Type: 
  Country: None (occurrence: None)
  Receive Date: 20060901
  Receipt Date: 20060825
  Transmission Date: 20061208
  Serious: Yes (Hospitalization, Other)
  Sender: FDA-Public Use
  Company Number: JP-JPN-A200603341

PATIENT
  Age: 77 Year
  Sex: Male

DRUGS (5)
  1. PAXIL [Suspect]
     Indication: PANIC DISORDER
     Dosage: 10MG PER DAY
     Route: 048
     Dates: start: 20041001, end: 20060820
  2. ROHYPNOL [Concomitant]
     Dosage: 1 PER DAY
     Route: 048
     Dates: start: 20031001
  3. MEILAX [Concomitant]
     Route: 048
     Dates: start: 20031001
  4. LENDORMIN [Concomitant]
     Dosage: 1 PER DAY
     Route: 048
     Dates: start: 20040901
  5. RONLAX [Concomitant]
     Route: 048
     Dates: start: 20031001

REACTIONS (1)
  - RHABDOMYOLYSIS [None]
